FAERS Safety Report 23251929 (Version 1)
Quarter: 2023Q4

REPORT INFORMATION
  Report Type: Spontaneous
  Country: US (occurrence: None)
  Receive Date: 20231201
  Receipt Date: 20231201
  Transmission Date: 20240110
  Serious: Yes (Disabling)
  Sender: FDA-Public Use
  Company Number: None

PATIENT
  Age: 76 Year
  Sex: Male
  Weight: 81 kg

DRUGS (5)
  1. PAXLOVID [Suspect]
     Active Substance: NIRMATRELVIR\RITONAVIR
     Indication: COVID-19
     Dates: start: 20231107, end: 20231113
  2. nortryptaline [Concomitant]
  3. one a day for seniors [Concomitant]
  4. METAMUCIL [Concomitant]
     Active Substance: PLANTAGO SEED
  5. citricel [Concomitant]

REACTIONS (3)
  - Diarrhoea [None]
  - Anal inflammation [None]
  - Dyschezia [None]

NARRATIVE: CASE EVENT DATE: 20231107
